FAERS Safety Report 12376126 (Version 1)
Quarter: 2016Q2

REPORT INFORMATION
  Report Type: Spontaneous
  Country: US (occurrence: None)
  Receive Date: 20160516
  Receipt Date: 20160516
  Transmission Date: 20160815
  Serious: No
  Sender: FDA-Public Use
  Company Number: None

PATIENT
  Age: 56 Year
  Sex: Male

DRUGS (1)
  1. METOPROLOL TARTRATE, 50MG [Suspect]
     Active Substance: METOPROLOL TARTRATE
     Indication: HYPERTENSION
     Route: 048
     Dates: start: 20160510, end: 20160514

REACTIONS (3)
  - Tinnitus [None]
  - Blepharospasm [None]
  - Tunnel vision [None]

NARRATIVE: CASE EVENT DATE: 20160514
